FAERS Safety Report 24864715 (Version 1)
Quarter: 2025Q1

REPORT INFORMATION
  Report Type: Spontaneous
  Country: US (occurrence: US)
  Receive Date: 20250121
  Receipt Date: 20250121
  Transmission Date: 20250409
  Serious: Yes (Other)
  Sender: STRIDES
  Company Number: US-STRIDES ARCOLAB LIMITED-2024SP000842

PATIENT
  Age: 4 Decade
  Sex: Male

DRUGS (8)
  1. METHOTREXATE [Suspect]
     Active Substance: METHOTREXATE
     Indication: Birdshot chorioretinopathy
     Route: 065
     Dates: start: 201612, end: 2017
  2. METHOTREXATE [Suspect]
     Active Substance: METHOTREXATE
     Indication: Immunomodulatory therapy
     Route: 065
  3. CYCLOSPORINE [Suspect]
     Active Substance: CYCLOSPORINE
     Indication: Birdshot chorioretinopathy
     Route: 065
     Dates: start: 201612, end: 2017
  4. CYCLOSPORINE [Suspect]
     Active Substance: CYCLOSPORINE
     Indication: Immunomodulatory therapy
     Route: 065
  5. FLUOCINOLONE ACETONIDE [Suspect]
     Active Substance: FLUOCINOLONE ACETONIDE
     Indication: Birdshot chorioretinopathy
     Dates: start: 201910
  6. ADALIMUMAB [Concomitant]
     Active Substance: ADALIMUMAB
     Indication: Birdshot chorioretinopathy
     Route: 065
     Dates: end: 2019
  7. BEVACIZUMAB [Concomitant]
     Active Substance: BEVACIZUMAB
     Indication: Birdshot chorioretinopathy
     Route: 065
     Dates: start: 201611
  8. PREDNISONE [Concomitant]
     Active Substance: PREDNISONE
     Indication: Birdshot chorioretinopathy
     Route: 065
     Dates: start: 201611

REACTIONS (1)
  - Drug ineffective for unapproved indication [Unknown]
